FAERS Safety Report 12766142 (Version 1)
Quarter: 2016Q3

REPORT INFORMATION
  Report Type: Spontaneous
  Country: US (occurrence: US)
  Receive Date: 20160920
  Receipt Date: 20160920
  Transmission Date: 20161109
  Serious: Yes (Life-Threatening, Hospitalization)
  Sender: FDA-Public Use
  Company Number: None

PATIENT
  Age: 65 Year
  Sex: Male
  Weight: 60 kg

DRUGS (2)
  1. NUPLAZID [Concomitant]
     Active Substance: PIMAVANSERIN TARTRATE
  2. PIMAVANSERIN [Suspect]
     Active Substance: PIMAVANSERIN
     Indication: PSYCHOTIC DISORDER
     Dates: start: 20160811

REACTIONS (11)
  - Rib fracture [None]
  - Cerebral haemorrhage [None]
  - Psychotic disorder [None]
  - Fall [None]
  - Pelvic fracture [None]
  - Confusional state [None]
  - Splenic rupture [None]
  - Agitation [None]
  - Arterial injury [None]
  - Abnormal behaviour [None]
  - Traumatic liver injury [None]

NARRATIVE: CASE EVENT DATE: 20160819
